FAERS Safety Report 23237359 (Version 1)
Quarter: 2023Q4

REPORT INFORMATION
  Report Type: Report from Study
  Country: ES (occurrence: ES)
  Receive Date: 20231128
  Receipt Date: 20231128
  Transmission Date: 20240110
  Serious: Yes (Other)
  Sender: FDA-Public Use
  Company Number: ES-PFIZER INC-202300410245

PATIENT

DRUGS (2)
  1. NIRMATRELVIR\RITONAVIR [Interacting]
     Active Substance: NIRMATRELVIR\RITONAVIR
     Indication: COVID-19 treatment
     Dosage: UNK, 2X/DAY, 5 DAYS
  2. BORTEZOMIB [Interacting]
     Active Substance: BORTEZOMIB
     Dosage: UNK

REACTIONS (2)
  - Hypocalcaemia [Unknown]
  - Drug interaction [Unknown]
